FAERS Safety Report 6211835-7 (Version None)
Quarter: 2009Q2

REPORT INFORMATION
  Report Type: 
  Country: None (occurrence: None)
  Receive Date: 20090528
  Receipt Date: 20090514
  Transmission Date: 20091009
  Serious: Yes (Death, Hospitalization)
  Sender: FDA-Public Use
  Company Number: CFNT-359

PATIENT
  Age: 81 Year
  Sex: Male

DRUGS (10)
  1. MEIACT MS TABLET (CEFDITOREN PIVOXIL) [Suspect]
     Indication: PHARYNGITIS
     Dosage: 300MG BY MOUTH
     Dates: start: 20090423, end: 20090427
  2. L-CARBOCISTEINE [Concomitant]
  3. PL (SALICYLAMIDE/ ACETAMINOPHEN/ ANHYDROUS CAFFEINE/ PROMETHAZINE METH [Concomitant]
  4. ALLELOCK (OLOPATADINE HYDROCHLORIDE) [Concomitant]
  5. CYTOTEC [Concomitant]
  6. VOLTAREN [Concomitant]
  7. TEPRENONE [Concomitant]
  8. TELMISARTAN [Concomitant]
  9. BENIDIPINE HYDROCHLORIDE [Concomitant]
  10. AMBROXOL HYDROCHLORIDE [Concomitant]

REACTIONS (4)
  - DIALYSIS [None]
  - EPISTAXIS [None]
  - HEPATITIS FULMINANT [None]
  - JAUNDICE CHOLESTATIC [None]
